FAERS Safety Report 25364344 (Version 1)
Quarter: 2025Q2

REPORT INFORMATION
  Report Type: Spontaneous
  Country: NL (occurrence: NL)
  Receive Date: 20250527
  Receipt Date: 20250527
  Transmission Date: 20250717
  Serious: Yes (Life-Threatening, Hospitalization, Other)
  Sender: PFIZER
  Company Number: None

PATIENT
  Age: 21 Year
  Sex: Female
  Weight: 74 kg

DRUGS (1)
  1. ETHINYL ESTRADIOL\LEVONORGESTREL [Suspect]
     Active Substance: ETHINYL ESTRADIOL\LEVONORGESTREL
     Indication: Contraception
     Dosage: 1 X PER DAY 1 PIECE
     Route: 048
     Dates: start: 20160420, end: 20250512

REACTIONS (3)
  - Headache [Not Recovered/Not Resolved]
  - Hemianopia [Not Recovered/Not Resolved]
  - Cerebral infarction [Not Recovered/Not Resolved]
